FAERS Safety Report 21666649 (Version 1)
Quarter: 2022Q4

REPORT INFORMATION
  Report Type: Report from Study
  Country: US (occurrence: US)
  Receive Date: 20221201
  Receipt Date: 20221201
  Transmission Date: 20230113
  Serious: No
  Sender: FDA-Public Use
  Company Number: US-ABBVIE-4192798

PATIENT
  Sex: Female

DRUGS (2)
  1. RINVOQ [Suspect]
     Active Substance: UPADACITINIB
     Indication: Rheumatoid arthritis
     Dosage: FORM STRENGTH: 15 MG
     Route: 048
     Dates: start: 20220824
  2. LASIX [Concomitant]
     Active Substance: FUROSEMIDE
     Indication: COVID-19 immunisation
     Route: 065

REACTIONS (5)
  - Weight increased [Unknown]
  - Pain [Unknown]
  - Drug ineffective [Unknown]
  - Oedema [Unknown]
  - Dyspnoea [Unknown]
